FAERS Safety Report 24461559 (Version 1)
Quarter: 2024Q4

REPORT INFORMATION
  Report Type: Report from Study
  Country: US (occurrence: US)
  Receive Date: 20241018
  Receipt Date: 20241018
  Transmission Date: 20250114
  Serious: No
  Sender: ROCHE
  Company Number: US-ROCHE-3564846

PATIENT
  Age: 58 Year
  Sex: Female

DRUGS (10)
  1. RITUXAN [Suspect]
     Active Substance: RITUXIMAB
     Indication: Rheumatoid arthritis
     Dosage: 500 MG, SINGLE VIAL USE? FREQUENCY TEXT:DAY 1 DAY 15 EVERY  7 MONTHS
     Route: 041
     Dates: start: 20231025
  2. BUPROPION [Concomitant]
     Active Substance: BUPROPION
  3. CHOLECALCIFEROL [Concomitant]
     Active Substance: CHOLECALCIFEROL
  4. CYCLOSPORINE [Concomitant]
     Active Substance: CYCLOSPORINE
  5. EMPAGLIFLOZIN [Concomitant]
     Active Substance: EMPAGLIFLOZIN
  6. METOPROLOL [Concomitant]
     Active Substance: METOPROLOL
  7. MUPIROCIN [Concomitant]
     Active Substance: MUPIROCIN
  8. ROSUVASTATIN [Concomitant]
     Active Substance: ROSUVASTATIN
  9. VITAMIN C [Concomitant]
     Active Substance: ASCORBIC ACID
  10. ZINC CITRATE [Concomitant]
     Active Substance: ZINC CITRATE

REACTIONS (2)
  - Off label use [Unknown]
  - No adverse event [Unknown]
